FAERS Safety Report 11753419 (Version 1)
Quarter: 2015Q4

REPORT INFORMATION
  Report Type: Spontaneous
  Country: NL (occurrence: NL)
  Receive Date: 20151119
  Receipt Date: 20151119
  Transmission Date: 20160304
  Serious: Yes (Hospitalization)
  Sender: FDA-Public Use
  Company Number: NL-WATSON-2015-24190

PATIENT
  Age: 63 Year
  Sex: Male
  Weight: 75 kg

DRUGS (1)
  1. MINOCYCLINE\MINOCYCLINE HYDROCHLORIDE [Suspect]
     Active Substance: MINOCYCLINE\MINOCYCLINE HYDROCHLORIDE
     Indication: DERMATITIS
     Dosage: 50 MG, DAILY, 1 TIME PER DAY 1 PIECE
     Route: 048
     Dates: start: 20140815, end: 20140909

REACTIONS (5)
  - Drug prescribing error [Recovered/Resolved]
  - Hyperpyrexia [Recovered/Resolved]
  - Hypotension [Recovered/Resolved]
  - Arrhythmia [Recovered/Resolved]
  - Pulmonary oedema [Recovered/Resolved]

NARRATIVE: CASE EVENT DATE: 20140829
